FAERS Safety Report 11849313 (Version 1)
Quarter: 2015Q4

REPORT INFORMATION
  Report Type: Spontaneous
  Country: US (occurrence: US)
  Receive Date: 20151218
  Receipt Date: 20151218
  Transmission Date: 20160305
  Serious: No
  Sender: FDA-Public Use
  Company Number: US-FERRINGPH-2014FE02985

PATIENT
  Age: 36 Year
  Sex: Female
  Weight: 73.29 kg

DRUGS (3)
  1. DAILY VITAMINS [Concomitant]
     Dosage: UNK,FORMULATION:
  2. PROMETRIUM [Concomitant]
     Active Substance: PROGESTERONE
     Dosage: UNK,FORMULATION:
  3. REPRONEX [Suspect]
     Active Substance: FOLLITROPIN\LUTEINIZING HORMONE\MENOTROPINS
     Indication: IN VITRO FERTILISATION
     Dosage: 150 IU,1 TIME DAILY,FORMULATION:INJECTION
     Route: 058
     Dates: start: 20140903, end: 20140909

REACTIONS (1)
  - Exposure during pregnancy [Recovered/Resolved]

NARRATIVE: CASE EVENT DATE: 20140903
